FAERS Safety Report 25895939 (Version 1)
Quarter: 2025Q4

REPORT INFORMATION
  Report Type: Spontaneous
  Country: US (occurrence: None)
  Receive Date: 20251007
  Receipt Date: 20251007
  Transmission Date: 20260118
  Serious: Yes (Other)
  Sender: FDA-CTU
  Company Number: None

PATIENT
  Age: 79 Year
  Sex: Female
  Weight: 94.5 kg

DRUGS (16)
  1. WEGOVY [Suspect]
     Active Substance: SEMAGLUTIDE
     Indication: Weight decreased
  2. Inhalers Nebulizer [Concomitant]
  3. ALBUTEROL SULFATE [Concomitant]
     Active Substance: ALBUTEROL SULFATE
  4. aAtorvastatin 29mg [Concomitant]
  5. flluxetine 20mg [Concomitant]
  6. liothyrone 5mg [Concomitant]
  7. PANTOPRAZOLE SODIUM [Concomitant]
     Active Substance: PANTOPRAZOLE SODIUM
  8. PROGESTERONE [Concomitant]
     Active Substance: PROGESTERONE
  9. Synthrold 100mcg [Concomitant]
  10. SYNTHROID [Concomitant]
     Active Substance: LEVOTHYROXINE SODIUM
  11. Villbryd 20mg [Concomitant]
  12. Vitamin C 1,000mg [Concomitant]
  13. calcium D3 (600mg) [Concomitant]
  14. VITAMINS [Concomitant]
     Active Substance: VITAMINS
  15. Fish Oil omega 3 100mg [Concomitant]
  16. Super BComplex w/vit C [Concomitant]

REACTIONS (1)
  - Dyspnoea [None]

NARRATIVE: CASE EVENT DATE: 20241020
